FAERS Safety Report 24923763 (Version 4)
Quarter: 2025Q1

REPORT INFORMATION
  Report Type: Spontaneous
  Country: ES (occurrence: ES)
  Receive Date: 20250204
  Receipt Date: 20250304
  Transmission Date: 20250409
  Serious: Yes (Hospitalization, Other)
  Sender: MERCK KGAA
  Company Number: ES-Merck Healthcare KGaA-2025004601

PATIENT
  Age: 48 Year
  Sex: Female

DRUGS (1)
  1. LEVOTHYROXINE SODIUM [Suspect]
     Active Substance: LEVOTHYROXINE SODIUM
     Indication: Post procedural hypothyroidism
     Dates: start: 2007

REACTIONS (9)
  - Decompensated hypothyroidism [Not Recovered/Not Resolved]
  - Blood thyroid stimulating hormone increased [Not Recovered/Not Resolved]
  - Adrenal insufficiency [Unknown]
  - Adrenal disorder [Unknown]
  - Granuloma [Not Recovered/Not Resolved]
  - Postural orthostatic tachycardia syndrome [Unknown]
  - COVID-19 [Unknown]
  - Suspected product quality issue [Unknown]
  - Drug ineffective [Unknown]

NARRATIVE: CASE EVENT DATE: 20241001
